FAERS Safety Report 11631208 (Version 2)
Quarter: 2015Q4

REPORT INFORMATION
  Report Type: Spontaneous
  Country: FI (occurrence: FI)
  Receive Date: 20151014
  Receipt Date: 20151021
  Transmission Date: 20160304
  Serious: Yes (Other)
  Sender: FDA-Public Use
  Company Number: PHHY2015FI122637

PATIENT
  Sex: Female

DRUGS (1)
  1. FEMAR [Suspect]
     Active Substance: LETROZOLE
     Indication: BREAST CANCER
     Route: 065

REACTIONS (2)
  - Rheumatic disorder [Unknown]
  - Joint stiffness [Not Recovered/Not Resolved]
